FAERS Safety Report 7633729-2 (Version None)
Quarter: 2011Q3

REPORT INFORMATION
  Report Type: 
  Country: None (occurrence: None)
  Receive Date: 20110725
  Receipt Date: 20110718
  Transmission Date: 20111222
  Serious: Yes (Other)
  Sender: FDA-Public Use
  Company Number: US-SANOFI-AVENTIS-2011SA046917

PATIENT
  Age: 45 Year
  Sex: Male

DRUGS (5)
  1. ACETONE [Suspect]
     Route: 065
  2. DIPHENHYDRAMINE HCL [Suspect]
     Route: 065
  3. ZOLPIDEM [Suspect]
     Route: 048
  4. CAFFEINE CITRATE [Suspect]
     Route: 065
  5. CITALOPRAM HYDROBROMIDE [Suspect]
     Route: 065

REACTIONS (3)
  - ANGER [None]
  - HOMICIDE [None]
  - AMNESIA [None]
